FAERS Safety Report 7331911-5 (Version None)
Quarter: 2011Q1

REPORT INFORMATION
  Report Type: 
  Country: None (occurrence: None)
  Receive Date: 20110304
  Receipt Date: 20100120
  Transmission Date: 20110831
  Serious: No
  Sender: FDA-Public Use
  Company Number: US-PFIZER INC-2010004860

PATIENT
  Sex: Male

DRUGS (3)
  1. CAVERJECT [Suspect]
     Dosage: 20 UG, UNK
     Dates: start: 20041201
  2. CELEBREX [Concomitant]
     Indication: ARTHRITIS
     Dosage: UNK
  3. METOPROLOL TARTRATE [Concomitant]
     Indication: BLOOD PRESSURE ABNORMAL
     Dosage: UNK

REACTIONS (1)
  - DRUG INEFFECTIVE [None]
